FAERS Safety Report 6485268-2 (Version None)
Quarter: 2009Q4

REPORT INFORMATION
  Report Type: 
  Country: None (occurrence: None)
  Receive Date: 20091209
  Receipt Date: 20091201
  Transmission Date: 20100525
  Serious: Yes (Other)
  Sender: FDA-Public Use
  Company Number: JP-MERCK-0912USA00776

PATIENT

DRUGS (1)
  1. PEPCID [Suspect]
     Route: 042

REACTIONS (1)
  - EPILEPSY [None]
